FAERS Safety Report 6644175-2 (Version None)
Quarter: 2010Q1

REPORT INFORMATION
  Report Type: 
  Country: None (occurrence: None)
  Receive Date: 20100322
  Receipt Date: 20100318
  Transmission Date: 20100710
  Serious: Yes (Death, Other)
  Sender: FDA-Public Use
  Company Number: PHHY2009BR14471

PATIENT
  Sex: Female
  Weight: 75 kg

DRUGS (2)
  1. EXELON [Suspect]
     Dosage: 2 DF, QD
     Route: 048
  2. EXELON [Suspect]
     Dosage: 18MG/10CM2 , 1 PATCH/DAY
     Route: 062
     Dates: start: 20090415

REACTIONS (8)
  - DEATH [None]
  - DYSSTASIA [None]
  - FALL [None]
  - GAIT DISTURBANCE [None]
  - JOINT DISLOCATION [None]
  - MUSCULAR WEAKNESS [None]
  - PAIN [None]
  - SKIN DISCOLOURATION [None]
